FAERS Safety Report 13994145 (Version 1)
Quarter: 2017Q3

REPORT INFORMATION
  Report Type: Not Available
  Country: US (occurrence: US)
  Receive Date: 20170920
  Receipt Date: 20170920
  Transmission Date: 20171128
  Serious: No
  Sender: FDA-Public Use
  Company Number: US-NEUROCRINE BIOSCIENCES INC.-2017NBI00507

PATIENT
  Age: 64 Year
  Sex: Female

DRUGS (1)
  1. INGREZZA [Suspect]
     Active Substance: VALBENAZINE
     Indication: PRODUCT USED FOR UNKNOWN INDICATION
     Route: 048
     Dates: start: 20170707, end: 201707

REACTIONS (4)
  - Tinnitus [Unknown]
  - Nausea [Unknown]
  - Incoherent [Unknown]
  - Dizziness [Unknown]

NARRATIVE: CASE EVENT DATE: 20170707
